FAERS Safety Report 17063298 (Version 1)
Quarter: 2019Q4

REPORT INFORMATION
  Report Type: Spontaneous
  Country: US (occurrence: US)
  Receive Date: 20191122
  Receipt Date: 20191122
  Transmission Date: 20200122
  Serious: No
  Sender: FDA-Public Use
  Company Number: US-BAYER-2019-207797

PATIENT
  Sex: Male

DRUGS (1)
  1. ADEMPAS [Suspect]
     Active Substance: RIOCIGUAT
     Indication: PULMONARY HYPERTENSION
     Dosage: 0.5 MG
     Route: 048
     Dates: start: 2019, end: 2019

REACTIONS (2)
  - Malaise [None]
  - Dermatitis allergic [None]

NARRATIVE: CASE EVENT DATE: 201910
